FAERS Safety Report 19392682 (Version 1)
Quarter: 2021Q2

REPORT INFORMATION
  Report Type: Spontaneous
  Country: CH (occurrence: CH)
  Receive Date: 20210609
  Receipt Date: 20210609
  Transmission Date: 20210717
  Serious: Yes (Hospitalization, Other)
  Sender: FDA-Public Use
  Company Number: CH-ASTRAZENECA-2021A485376

PATIENT
  Age: 76 Year
  Sex: Female

DRUGS (11)
  1. IMFINZI [Suspect]
     Active Substance: DURVALUMAB
     Dosage: 10.0MG/KG UNKNOWN
     Route: 042
     Dates: start: 202103, end: 202104
  2. COMIRNATY [Suspect]
     Active Substance: TOZINAMERAN
     Dosage: FINE DOSE.1.0DF UNKNOWN
     Route: 030
     Dates: start: 20210310, end: 20210310
  3. XARELTO [Concomitant]
     Active Substance: RIVAROXABAN
  4. FOLVITE [Concomitant]
     Active Substance: FOLIC ACID
  5. ALIMTA [Concomitant]
     Active Substance: PEMETREXED DISODIUM
     Dosage: TOTAL OF 4 CYCLES.; CYCLICAL1.0DF UNKNOWN
     Route: 042
     Dates: start: 20201102, end: 20210201
  6. TENORMIN [Concomitant]
     Active Substance: ATENOLOL
  7. CANDESARTAN PLUS [Concomitant]
     Active Substance: CANDESARTAN CILEXETIL\HYDROCHLOROTHIAZIDE
  8. COMIRNATY [Suspect]
     Active Substance: TOZINAMERAN
     Dosage: SECOND DOSE.1.0DF UNKNOWN
     Route: 030
     Dates: start: 20210407, end: 20210407
  9. CRESTASTATIN [Concomitant]
     Active Substance: ROSUVASTATIN CALCIUM
  10. EUTHYROX [Concomitant]
     Active Substance: LEVOTHYROXINE SODIUM
  11. CARBOPLATIN TEVA [Concomitant]
     Active Substance: CARBOPLATIN
     Dosage: TOTAL OF 4 CYCLES.; CYCLICAL1.0DF UNKNOWN
     Route: 042
     Dates: start: 20201102, end: 20210201

REACTIONS (3)
  - Transaminases increased [Recovered/Resolved]
  - Troponin increased [Recovering/Resolving]
  - Blood creatine phosphokinase increased [Recovering/Resolving]

NARRATIVE: CASE EVENT DATE: 20210419
